FAERS Safety Report 15037896 (Version 1)
Quarter: 2018Q2

REPORT INFORMATION
  Report Type: Spontaneous
  Country: TW (occurrence: TW)
  Receive Date: 20180620
  Receipt Date: 20180620
  Transmission Date: 20180711
  Serious: Yes (Other)
  Sender: FDA-Public Use
  Company Number: TW-UCBSA-2018025961

PATIENT
  Age: 15 Year
  Sex: Male

DRUGS (6)
  1. PHENOBARBITAL. [Suspect]
     Active Substance: PHENOBARBITAL
     Indication: MYOCLONIC EPILEPSY
     Dosage: UNKNOWN DOSE
  2. TOPIRAMATE. [Concomitant]
     Active Substance: TOPIRAMATE
     Indication: PRODUCT USED FOR UNKNOWN INDICATION
     Dosage: UNKNOWN DOSE
  3. SODIUM VALPROATE [Suspect]
     Active Substance: VALPROATE SODIUM
     Indication: MYOCLONIC EPILEPSY
     Dosage: UNKNOWN DOSE
  4. PHENOBARBITAL. [Suspect]
     Active Substance: PHENOBARBITAL
     Dosage: TOTAL WEANING OF DRUG
  5. LEVETIRACETAM. [Suspect]
     Active Substance: LEVETIRACETAM
     Indication: MYOCLONIC EPILEPSY
     Dosage: UNKNOWN DOSE
  6. CLOBAZAM [Suspect]
     Active Substance: CLOBAZAM
     Indication: MYOCLONIC EPILEPSY
     Dosage: UNKNOWN DOSE

REACTIONS (2)
  - Pneumonia aspiration [Unknown]
  - Multiple-drug resistance [Unknown]
